FAERS Safety Report 16554759 (Version 3)
Quarter: 2019Q4

REPORT INFORMATION
  Report Type: Spontaneous
  Country: US (occurrence: US)
  Receive Date: 20190710
  Receipt Date: 20191120
  Transmission Date: 20200122
  Serious: Yes (Hospitalization)
  Sender: FDA-Public Use
  Company Number: US-PFIZER INC-2019290308

PATIENT
  Age: 57 Year
  Sex: Male
  Weight: 77 kg

DRUGS (2)
  1. XELJANZ XR [Interacting]
     Active Substance: TOFACITINIB CITRATE
     Dosage: 11 MG, UNK
  2. METHOTREXATE SODIUM. [Suspect]
     Active Substance: METHOTREXATE SODIUM
     Dosage: 20 MG, WEEKLY (ONCE A WEEK)

REACTIONS (5)
  - Gastrointestinal disorder [Unknown]
  - Drug interaction [Unknown]
  - Condition aggravated [Unknown]
  - Malaise [Unknown]
  - Candida infection [Unknown]
